FAERS Safety Report 5748188-4 (Version None)
Quarter: 2008Q2

REPORT INFORMATION
  Report Type: 
  Country: None (occurrence: None)
  Receive Date: 20080523
  Receipt Date: 20080514
  Transmission Date: 20081010
  Serious: Yes (Other)
  Sender: FDA-Public Use
  Company Number: KR-BOEHRINGER INGELHEIM GMBH, GERMANY-2008-DE-02925GL

PATIENT
  Age: 50 Year
  Sex: Female

DRUGS (1)
  1. TELMISARTAN [Suspect]
     Indication: HYPERTENSION
     Route: 048
     Dates: start: 20070101

REACTIONS (3)
  - DIZZINESS [None]
  - NAUSEA [None]
  - VISUAL ACUITY REDUCED [None]
